FAERS Safety Report 4318010-1 (Version None)
Quarter: 2004Q1

REPORT INFORMATION
  Report Type: 
  Country: None (occurrence: None)
  Receive Date: 20040316
  Receipt Date: 19910128
  Transmission Date: 20041129
  Serious: Yes (Hospitalization)
  Sender: FDA-Public Use
  Company Number: WAES 94067918

PATIENT
  Age: 72 Year
  Sex: Male

DRUGS (7)
  1. ASPIRIN AND DIPYRIDAMOLE [Concomitant]
     Dates: start: 19870101
  2. ATENOLOL [Concomitant]
  3. DANAZOL [Suspect]
     Indication: IDIOPATHIC THROMBOCYTOPENIC PURPURA
     Route: 048
     Dates: start: 19901009, end: 19901109
  4. DOXYCYCLINE HYCLATE [Suspect]
     Indication: BRONCHITIS
     Route: 048
     Dates: start: 19901019, end: 19901020
  5. GLYBURIDE [Concomitant]
  6. MEVACOR [Suspect]
     Indication: HYPERLIPIDAEMIA
     Route: 048
     Dates: start: 19900201, end: 19901112
  7. PREDNISONE [Concomitant]
     Dates: start: 19901009, end: 19901109

REACTIONS (3)
  - DRUG INTERACTION [None]
  - RENAL FAILURE [None]
  - RHABDOMYOLYSIS [None]
